FAERS Safety Report 9171353 (Version 1)
Quarter: 2013Q1

REPORT INFORMATION
  Report Type: Spontaneous
  Country: US (occurrence: None)
  Receive Date: 20130318
  Receipt Date: 20130318
  Transmission Date: 20140127
  Serious: Yes (Other)
  Sender: FDA-Public Use
  Company Number: None

PATIENT
  Age: 66 Year
  Sex: Male
  Weight: 77.9 kg

DRUGS (2)
  1. DILTIAZEM [Suspect]
     Indication: ATRIAL FLUTTER
     Route: 042
     Dates: start: 20130221, end: 20130221
  2. METOPROLOL [Suspect]
     Indication: ATRIAL FLUTTER
     Route: 048
     Dates: start: 20130221, end: 20130221

REACTIONS (4)
  - Cardiac arrest [None]
  - Bradycardia [None]
  - Sinus tachycardia [None]
  - Hypotension [None]
